FAERS Safety Report 5243030-2 (Version None)
Quarter: 2007Q1

REPORT INFORMATION
  Report Type: 
  Country: None (occurrence: None)
  Receive Date: 20070215
  Receipt Date: 20070208
  Transmission Date: 20070707
  Serious: Yes (Other)
  Sender: FDA-Public Use
  Company Number: 223333

PATIENT
  Age: 47 Year

DRUGS (6)
  1. XOLAIR [Suspect]
     Indication: ASTHMA
     Dosage: 300 MG, Q2W, SUBCUTANEOUS
     Route: 058
     Dates: start: 20060106, end: 20060308
  2. MEDROL [Concomitant]
  3. ADVAIR DISKUS 100/50 [Concomitant]
  4. SINGULAIR [Concomitant]
  5. FLOVENT [Concomitant]
  6. XOPENEX [Concomitant]

REACTIONS (9)
  - ALLERGIC GRANULOMATOUS ANGIITIS [None]
  - ANGIOPATHY [None]
  - EOSINOPHILIA [None]
  - NECK PAIN [None]
  - PAIN IN EXTREMITY [None]
  - POLYPECTOMY [None]
  - PROTEIN URINE PRESENT [None]
  - TELANGIECTASIA [None]
  - URINE KETONE BODY PRESENT [None]
